FAERS Safety Report 18702761 (Version 2)
Quarter: 2021Q3

REPORT INFORMATION
  Report Type: Spontaneous
  Country: US (occurrence: US)
  Receive Date: 20210105
  Receipt Date: 20210823
  Transmission Date: 20211014
  Serious: Yes (Death, Other)
  Sender: FDA-Public Use
  Company Number: US-ASTRAZENECA-2021A000302

PATIENT
  Age: 65 Year
  Sex: Male

DRUGS (30)
  1. LUNESTA [Concomitant]
     Active Substance: ESZOPICLONE
  2. GLIMEPIRIDE. [Concomitant]
     Active Substance: GLIMEPIRIDE
  3. LANTUS [Concomitant]
     Active Substance: INSULIN GLARGINE
  4. CLOTRIMAZOLE. [Concomitant]
     Active Substance: CLOTRIMAZOLE
  5. OMEPRAZOLE. [Suspect]
     Active Substance: OMEPRAZOLE
     Indication: GASTROOESOPHAGEAL REFLUX DISEASE
     Route: 065
     Dates: start: 2016
  6. FUROSEMIDE. [Concomitant]
     Active Substance: FUROSEMIDE
     Indication: BLOOD CHOLESTEROL
  7. VENTOLIN [Concomitant]
     Active Substance: ALBUTEROL SULFATE
  8. XARELTO [Concomitant]
     Active Substance: RIVAROXABAN
  9. AFLURIA NOS [Concomitant]
     Active Substance: INFLUENZA VIRUS VACCINE TRIVALENT TYPE A+B AFLURIA
  10. METFORMIN [Concomitant]
     Active Substance: METFORMIN HYDROCHLORIDE
  11. MULTAQ [Concomitant]
     Active Substance: DRONEDARONE
  12. METOLAZONE. [Concomitant]
     Active Substance: METOLAZONE
  13. NEXIUM [Suspect]
     Active Substance: ESOMEPRAZOLE MAGNESIUM
     Indication: GASTROOESOPHAGEAL REFLUX DISEASE
     Route: 048
     Dates: start: 201007, end: 201807
  14. LASIX [Concomitant]
     Active Substance: FUROSEMIDE
  15. LISINOPRIL. [Concomitant]
     Active Substance: LISINOPRIL
     Indication: BLOOD PRESSURE MEASUREMENT
  16. PROAIR HFA [Concomitant]
     Active Substance: ALBUTEROL SULFATE
  17. TRAZODONE [Concomitant]
     Active Substance: TRAZODONE HYDROCHLORIDE
  18. POTASSIUM CHLORIDE. [Concomitant]
     Active Substance: POTASSIUM CHLORIDE
  19. ENDOCET [Concomitant]
     Active Substance: ACETAMINOPHEN\OXYCODONE HYDROCHLORIDE
  20. ALLOPURINOL. [Concomitant]
     Active Substance: ALLOPURINOL
     Indication: BLOOD URIC ACID
  21. IBUPROFEN. [Concomitant]
     Active Substance: IBUPROFEN
     Indication: PAIN
  22. RAPAFLO [Concomitant]
     Active Substance: SILODOSIN
  23. METOPROLOL. [Concomitant]
     Active Substance: METOPROLOL
  24. PRAVASTATIN. [Concomitant]
     Active Substance: PRAVASTATIN
     Indication: BLOOD CHOLESTEROL
  25. PRAMIPEXOLE. [Concomitant]
     Active Substance: PRAMIPEXOLE
  26. HUMALOG [Concomitant]
     Active Substance: INSULIN LISPRO
  27. ALPRAZOLAM. [Concomitant]
     Active Substance: ALPRAZOLAM
  28. TAMSULOSIN [Concomitant]
     Active Substance: TAMSULOSIN
  29. SULFATRIM [Concomitant]
     Active Substance: SULFAMETHOXAZOLE\TRIMETHOPRIM
  30. FLOVENT [Concomitant]
     Active Substance: FLUTICASONE PROPIONATE

REACTIONS (3)
  - Acute kidney injury [Unknown]
  - Renal failure [Unknown]
  - Chronic kidney disease [Unknown]

NARRATIVE: CASE EVENT DATE: 2015
